FAERS Safety Report 14534318 (Version 1)
Quarter: 2018Q1

REPORT INFORMATION
  Report Type: Spontaneous
  Country: US (occurrence: US)
  Receive Date: 20180214
  Receipt Date: 20180214
  Transmission Date: 20180509
  Serious: No
  Sender: FDA-Public Use
  Company Number: None

PATIENT
  Sex: Female

DRUGS (1)
  1. IBRANCE [Suspect]
     Active Substance: PALBOCICLIB
     Indication: BREAST CANCER
     Dosage: DAILY FOR 3 WEEKS THEN 1 WEEKS OFF
     Route: 048
     Dates: start: 20180117, end: 20180213

REACTIONS (1)
  - White blood cell count decreased [None]
